FAERS Safety Report 17679166 (Version 7)
Quarter: 2021Q1

REPORT INFORMATION
  Report Type: Spontaneous
  Country: US (occurrence: US)
  Receive Date: 20200417
  Receipt Date: 20210318
  Transmission Date: 20210419
  Serious: Yes (Other)
  Sender: FDA-Public Use
  Company Number: US-GLAXOSMITHKLINE-US2020AMR061704

PATIENT
  Age: 79 Year
  Sex: Female

DRUGS (6)
  1. ZEJULA [Suspect]
     Active Substance: NIRAPARIB
     Dosage: 200 MG, QD
  2. VITAMIN D3 [Concomitant]
     Active Substance: CHOLECALCIFEROL
     Indication: PRODUCT USED FOR UNKNOWN INDICATION
     Dosage: UNK
  3. ZEJULA [Suspect]
     Active Substance: NIRAPARIB
     Dosage: 100 MG, QD
  4. ZEJULA [Suspect]
     Active Substance: NIRAPARIB
     Dosage: 200 MG, QD
     Dates: start: 20200303
  5. ZEJULA [Suspect]
     Active Substance: NIRAPARIB
     Indication: MALIGNANT PERITONEAL NEOPLASM
     Dosage: 100 MG, QD
     Dates: start: 20200303
  6. ZEJULA [Suspect]
     Active Substance: NIRAPARIB
     Dosage: 200 MG, QD

REACTIONS (22)
  - Nausea [Unknown]
  - Hordeolum [Unknown]
  - White coat hypertension [Not Recovered/Not Resolved]
  - Asthenia [Unknown]
  - Emotional disorder [Unknown]
  - Feeling abnormal [Unknown]
  - Product dose omission issue [Unknown]
  - Rash [Unknown]
  - Somnolence [Unknown]
  - Paraesthesia [Not Recovered/Not Resolved]
  - Blood glucose decreased [Unknown]
  - Hot flush [Not Recovered/Not Resolved]
  - Depression [Recovered/Resolved]
  - Vitamin D decreased [Unknown]
  - Fatigue [Not Recovered/Not Resolved]
  - Rash erythematous [Unknown]
  - Cognitive disorder [Unknown]
  - Social problem [Unknown]
  - Mental impairment [Unknown]
  - Dizziness [Unknown]
  - Anxiety [Recovered/Resolved]
  - Skin discolouration [Unknown]

NARRATIVE: CASE EVENT DATE: 20210310
